FAERS Safety Report 12763342 (Version 1)
Quarter: 2016Q3

REPORT INFORMATION
  Report Type: Spontaneous
  Country: US (occurrence: US)
  Receive Date: 20160919
  Receipt Date: 20160919
  Transmission Date: 20161109
  Serious: Yes (Other)
  Sender: FDA-Public Use
  Company Number: None

PATIENT
  Age: 78 Year
  Sex: Male
  Weight: 72 kg

DRUGS (2)
  1. TRANEXAMIC ACID. [Suspect]
     Active Substance: TRANEXAMIC ACID
     Indication: PROPHYLAXIS
     Dosage: 1000 MG OTHER INRAVENOUS BOLUS
     Route: 040
     Dates: start: 20160914, end: 20160914
  2. TRANEXAMIC ACID. [Suspect]
     Active Substance: TRANEXAMIC ACID
     Indication: TRANSFUSION
     Dosage: 1000 MG OTHER INRAVENOUS BOLUS
     Route: 040
     Dates: start: 20160914, end: 20160914

REACTIONS (2)
  - Cerebrovascular accident [None]
  - Embolism venous [None]

NARRATIVE: CASE EVENT DATE: 20160914
